FAERS Safety Report 7517505-7 (Version None)
Quarter: 2011Q2

REPORT INFORMATION
  Report Type: 
  Country: None (occurrence: None)
  Receive Date: 20110601
  Receipt Date: 20110519
  Transmission Date: 20111010
  Serious: Yes (Other)
  Sender: FDA-Public Use
  Company Number: PHHY2011US43623

PATIENT
  Sex: Female

DRUGS (2)
  1. MYFORTIC [Suspect]
     Indication: RENAL TRANSPLANT
     Dosage: 720 MG, BID
     Route: 048
  2. PROGRAF [Concomitant]

REACTIONS (2)
  - BLOOD PRESSURE ABNORMAL [None]
  - DYSPNOEA [None]
